FAERS Safety Report 8582686-3 (Version None)
Quarter: 2012Q3

REPORT INFORMATION
  Report Type: 
  Country: None (occurrence: None)
  Receive Date: 20120809
  Receipt Date: 20120112
  Transmission Date: 20120928
  Serious: Yes (Death)
  Sender: FDA-Public Use
  Company Number: US-ROCHE-GNE285415

PATIENT
  Sex: Female

DRUGS (2)
  1. XOLAIR [Suspect]
  2. XOLAIR [Suspect]
     Indication: ASTHMA
     Dosage: UNK
     Route: 058
     Dates: start: 20080915

REACTIONS (2)
  - ASTHMA [None]
  - DEATH [None]
